FAERS Safety Report 26114072 (Version 1)
Quarter: 2025Q4

REPORT INFORMATION
  Report Type: Spontaneous
  Country: US (occurrence: US)
  Receive Date: 20251202
  Receipt Date: 20251202
  Transmission Date: 20260117
  Serious: Yes (Other)
  Sender: NOVO NORDISK
  Company Number: US-NOVOPROD-1572593

PATIENT
  Age: 62 Year
  Sex: Female

DRUGS (2)
  1. WEGOVY [Suspect]
     Active Substance: SEMAGLUTIDE
     Indication: Weight control
     Dosage: STARTED AT LOWEST DOSE, GRADUALLY WENT UP TILL 1.7 MG BEFORE DISCONTINUING. WAS TAKING WEEKLY.
     Route: 058
     Dates: start: 202501, end: 202508
  2. WEGOVY [Suspect]
     Active Substance: SEMAGLUTIDE
     Indication: Weight control
     Dosage: 1.7 MG, QW
     Route: 058

REACTIONS (6)
  - Colitis [Recovered/Resolved]
  - Cholelithiasis [Recovered/Resolved]
  - Condition aggravated [Recovered/Resolved]
  - Nausea [Not Recovered/Not Resolved]
  - Vomiting [Not Recovered/Not Resolved]
  - Off label use [Unknown]

NARRATIVE: CASE EVENT DATE: 20250101
